FAERS Safety Report 6566299-0 (Version None)
Quarter: 2010Q1

REPORT INFORMATION
  Report Type: 
  Country: None (occurrence: None)
  Receive Date: 20100202
  Receipt Date: 20100121
  Transmission Date: 20100710
  Serious: Yes (Death, Hospitalization)
  Sender: FDA-Public Use
  Company Number: IT-PFIZER INC-2010005475

PATIENT
  Age: 62 Year
  Sex: Female

DRUGS (4)
  1. SUNITINIB MALATE [Suspect]
     Indication: METASTATIC RENAL CELL CARCINOMA
     Dosage: 37.5 MG, 1X/DAY
     Route: 048
     Dates: start: 20091218
  2. LISINOPRIL [Concomitant]
  3. CITALOPRAM [Concomitant]
  4. HEPARIN [Concomitant]

REACTIONS (3)
  - MUCOSAL INFLAMMATION [None]
  - NEUTROPENIA [None]
  - THROMBOCYTOPENIA [None]
